FAERS Safety Report 15136604 (Version 2)
Quarter: 2018Q3

REPORT INFORMATION
  Report Type: Report from Study
  Country: US (occurrence: US)
  Receive Date: 20180712
  Receipt Date: 20180716
  Transmission Date: 20181010
  Serious: Yes (Hospitalization)
  Sender: FDA-Public Use
  Company Number: US-ACTELION-A-NJ2018-170186

PATIENT
  Age: 48 Year
  Sex: Female
  Weight: 77.98 kg

DRUGS (4)
  1. OPSUMIT [Suspect]
     Active Substance: MACITENTAN
     Indication: PULMONARY ARTERIAL HYPERTENSION
     Dosage: 10 MG, QD
     Route: 048
  2. UPTRAVI [Suspect]
     Active Substance: SELEXIPAG
     Dosage: UNK
     Route: 048
  3. SILDENAFIL CITRATE. [Concomitant]
     Active Substance: SILDENAFIL CITRATE
  4. UPTRAVI [Suspect]
     Active Substance: SELEXIPAG
     Indication: PULMONARY ARTERIAL HYPERTENSION
     Dosage: 1000 MCG, BID
     Route: 048

REACTIONS (17)
  - Muscular weakness [Unknown]
  - Asthenia [Unknown]
  - Unevaluable event [Unknown]
  - Drug dose omission [Unknown]
  - Dyspnoea [Unknown]
  - Headache [Recovering/Resolving]
  - Chest pain [Unknown]
  - Pain in extremity [Unknown]
  - Pulmonary arterial hypertension [Unknown]
  - Fall [Unknown]
  - Influenza like illness [Unknown]
  - Peripheral swelling [Unknown]
  - Oral pain [Unknown]
  - Pain in jaw [Not Recovered/Not Resolved]
  - Nasal congestion [Unknown]
  - Pyrexia [Unknown]
  - Flushing [Unknown]
